FAERS Safety Report 20419425 (Version 5)
Quarter: 2022Q2

REPORT INFORMATION
  Report Type: Report from Study
  Country: GT (occurrence: None)
  Receive Date: 20220203
  Receipt Date: 20220622
  Transmission Date: 20220720
  Serious: Yes (Death, Hospitalization)
  Sender: FDA-Public Use
  Company Number: GT-Merck Healthcare KGaA-9297150

PATIENT
  Age: 31 Year
  Sex: Female

DRUGS (1)
  1. REBIF [Suspect]
     Active Substance: INTERFERON BETA-1A
     Indication: Multiple sclerosis
     Route: 058
     Dates: start: 20210929, end: 20220128

REACTIONS (9)
  - Cardio-respiratory arrest [Fatal]
  - Systemic lupus erythematosus [Not Recovered/Not Resolved]
  - Peripheral swelling [Not Recovered/Not Resolved]
  - Joint swelling [Not Recovered/Not Resolved]
  - Swelling face [Not Recovered/Not Resolved]
  - Arthralgia [Not Recovered/Not Resolved]
  - Haemolytic anaemia [Recovering/Resolving]
  - Kidney infection [Not Recovered/Not Resolved]
  - Product administration interrupted [Unknown]

NARRATIVE: CASE EVENT DATE: 20220101
